FAERS Safety Report 6154347-1 (Version None)
Quarter: 2009Q2

REPORT INFORMATION
  Report Type: 
  Country: None (occurrence: None)
  Receive Date: 20090414
  Receipt Date: 20090202
  Transmission Date: 20091009
  Serious: No
  Sender: FDA-Public Use
  Company Number: A0767205A

PATIENT
  Sex: Male

DRUGS (1)
  1. REQUIP XL [Suspect]

REACTIONS (1)
  - DRUG INEFFECTIVE [None]
